FAERS Safety Report 26074601 (Version 1)
Quarter: 2025Q4

REPORT INFORMATION
  Report Type: Spontaneous
  Country: US (occurrence: None)
  Receive Date: 20251120
  Receipt Date: 20251120
  Transmission Date: 20260117
  Serious: No
  Sender: FDA-CTU
  Company Number: None

PATIENT
  Age: 65 Year
  Sex: Male

DRUGS (8)
  1. ANZUPGO [Suspect]
     Active Substance: DELGOCITINIB
     Indication: Eczema
     Dosage: OTHER QUANTITY : APPLY SMALL AMOUNT;?FREQUENCY : TWICE A DAY;?
     Route: 061
     Dates: start: 20251111, end: 20251120
  2. ZOLPIDEM [Concomitant]
     Active Substance: ZOLPIDEM TARTRATE
  3. TRIAMCONOLONE CREAM 1% [Concomitant]
  4. TRAZODONE [Concomitant]
     Active Substance: TRAZODONE HYDROCHLORIDE
  5. KETOCONAZOLE [Concomitant]
     Active Substance: KETOCONAZOLE
  6. ESCITALOPRAM OXALATE [Concomitant]
     Active Substance: ESCITALOPRAM OXALATE
  7. CLOBETASOL 0.05% OINT [Concomitant]
  8. CICLOPIROX 8% NAIL LACQUER [Concomitant]

REACTIONS (2)
  - Therapy cessation [None]
  - Drug ineffective [None]

NARRATIVE: CASE EVENT DATE: 20251120
